FAERS Safety Report 5876633-2 (Version None)
Quarter: 2008Q3

REPORT INFORMATION
  Report Type: 
  Country: None (occurrence: None)
  Receive Date: 20080908
  Receipt Date: 20080814
  Transmission Date: 20090109
  Serious: Yes (Other)
  Sender: FDA-Public Use
  Company Number: 1210513-2008-00001

PATIENT
  Sex: Female

DRUGS (1)
  1. DOLLAR GENERAL MUSCLE RUB CREAM 1.25 OZ [Suspect]
     Indication: MUSCLE DISORDER
     Dosage: OTC TOPICAL NON-DOSESPEC
     Route: 061
     Dates: start: 20080526

REACTIONS (4)
  - BLISTER [None]
  - PHARMACEUTICAL PRODUCT COMPLAINT [None]
  - SKIN DISCOLOURATION [None]
  - SKIN EXFOLIATION [None]
